FAERS Safety Report 23826064 (Version 2)
Quarter: 2024Q2

REPORT INFORMATION
  Report Type: Spontaneous
  Country: US (occurrence: US)
  Receive Date: 20240507
  Receipt Date: 20240528
  Transmission Date: 20240715
  Serious: Yes (Other)
  Sender: FDA-Public Use
  Company Number: US-PFIZER INC-202400100712

PATIENT
  Age: 43 Year
  Sex: Female
  Weight: 64.41 kg

DRUGS (4)
  1. OXBRYTA [Suspect]
     Active Substance: VOXELOTOR
     Indication: Haemoglobin decreased
     Dosage: 1500 MG, DAILY
     Route: 048
  2. OXBRYTA [Suspect]
     Active Substance: VOXELOTOR
     Indication: Blood disorder
  3. OXBRYTA [Suspect]
     Active Substance: VOXELOTOR
     Indication: White blood cell count abnormal
  4. ENDARI [Concomitant]
     Active Substance: GLUTAMINE
     Dosage: [TAKES ENDARI 15 G TWICE A DAY]

REACTIONS (2)
  - Haemoglobin decreased [Not Recovered/Not Resolved]
  - Post-acute COVID-19 syndrome [Recovered/Resolved]

NARRATIVE: CASE EVENT DATE: 20221201
